FAERS Safety Report 6659588-2 (Version None)
Quarter: 2010Q1

REPORT INFORMATION
  Report Type: 
  Country: None (occurrence: None)
  Receive Date: 20100330
  Receipt Date: 20100318
  Transmission Date: 20100710
  Serious: Yes (Hospitalization)
  Sender: FDA-Public Use
  Company Number: BR-GENENTECH-293400

PATIENT
  Sex: Male
  Weight: 73 kg

DRUGS (19)
  1. RITUXIMAB [Suspect]
     Indication: VASCULITIS
     Dosage: UNK
     Route: 042
     Dates: start: 20080101, end: 20080101
  2. RITUXIMAB [Suspect]
     Dosage: UNK
     Route: 042
     Dates: start: 20090101, end: 20090101
  3. RITUXIMAB [Suspect]
     Dosage: 1000 MG, SINGLE
     Route: 042
     Dates: start: 20100125, end: 20100125
  4. RIVOTRIL [Suspect]
     Indication: DRUG USE FOR UNKNOWN INDICATION
     Dosage: 2 MG, UNK
     Route: 065
  5. BROMAZEPAM [Suspect]
     Indication: DRUG USE FOR UNKNOWN INDICATION
     Dosage: UNK
     Route: 065
  6. SERTRALINE HYDROCHLORIDE [Suspect]
     Indication: DRUG USE FOR UNKNOWN INDICATION
     Dosage: 50 MG, UNK
     Route: 065
  7. CYCLOBENZAPRINE HYDROCHLORIDE [Concomitant]
     Indication: DRUG USE FOR UNKNOWN INDICATION
     Dosage: 10 MG, UNK
  8. SERETIDE [Concomitant]
     Indication: ASTHMA
     Dosage: UNK
     Dates: start: 20010101
  9. OMEPRAZOLE [Concomitant]
     Indication: DRUG USE FOR UNKNOWN INDICATION
     Dosage: UNK
  10. ASPIRIN [Concomitant]
     Indication: DRUG USE FOR UNKNOWN INDICATION
     Dosage: 300 MG, UNK
  11. VYTORIN [Concomitant]
     Indication: BLOOD CHOLESTEROL ABNORMAL
     Dosage: 10 MG, UNK
  12. FENOFIBRATE [Concomitant]
     Indication: BLOOD CHOLESTEROL ABNORMAL
     Dosage: 250 MG, UNK
  13. METHADONE [Concomitant]
     Indication: DRUG USE FOR UNKNOWN INDICATION
     Dosage: 10 MG, UNK
  14. LINOLEIC ACID [Concomitant]
     Indication: DRUG USE FOR UNKNOWN INDICATION
     Dosage: UNK
     Dates: start: 20010101
  15. LAKTULOSE [Concomitant]
     Indication: DRUG USE FOR UNKNOWN INDICATION
  16. GLIMEPIRIDE [Concomitant]
     Indication: HYPERGLYCAEMIA
     Dosage: 2 MG, UNK
  17. LOSARTAN POTASSIUM [Concomitant]
     Indication: DRUG USE FOR UNKNOWN INDICATION
     Dosage: 25 MG, UNK
  18. AMITRIPTYLINE [Concomitant]
     Indication: DRUG USE FOR UNKNOWN INDICATION
  19. DULCOLAX PRODUCT NOS [Concomitant]
     Indication: DRUG USE FOR UNKNOWN INDICATION

REACTIONS (38)
  - ABDOMINAL PAIN [None]
  - ABDOMINAL PAIN UPPER [None]
  - AMNESIA [None]
  - ARRHYTHMIA [None]
  - ARTHRALGIA [None]
  - ATRIAL FIBRILLATION [None]
  - BRUXISM [None]
  - BURNING SENSATION [None]
  - CHEST PAIN [None]
  - CONSTIPATION [None]
  - COORDINATION ABNORMAL [None]
  - COUGH [None]
  - DELUSION [None]
  - DEPRESSION [None]
  - DIZZINESS [None]
  - DRUG INEFFECTIVE [None]
  - DYSGRAPHIA [None]
  - DYSPNOEA [None]
  - DYSSTASIA [None]
  - DYSURIA [None]
  - EATING DISORDER [None]
  - ERYTHEMA [None]
  - FALL [None]
  - HEADACHE [None]
  - HOSPITALISATION [None]
  - ILL-DEFINED DISORDER [None]
  - INSOMNIA [None]
  - LUNG INFECTION [None]
  - MASTICATION DISORDER [None]
  - NAUSEA [None]
  - NECK PAIN [None]
  - PAIN [None]
  - PRURITUS [None]
  - RHINITIS [None]
  - SINUSITIS [None]
  - SYNCOPE [None]
  - TOOTH FRACTURE [None]
  - VASCULITIS [None]
